FAERS Safety Report 4385813-7 (Version None)
Quarter: 2004Q2

REPORT INFORMATION
  Report Type: 
  Country: None (occurrence: None)
  Receive Date: 20040628
  Receipt Date: 20040316
  Transmission Date: 20050107
  Serious: Yes (Life-Threatening, Hospitalization)
  Sender: FDA-Public Use
  Company Number: AU-ROCHE-361751

PATIENT
  Age: 48 Year
  Sex: Female
  Weight: 95 kg

DRUGS (3)
  1. XENICAL [Suspect]
     Indication: OBESITY
     Route: 048
     Dates: start: 20040120, end: 20040127
  2. DILANTIN [Concomitant]
     Indication: EPILEPSY
  3. CARBAMAZEPINE [Concomitant]
     Route: 048

REACTIONS (3)
  - DRUG LEVEL DECREASED [None]
  - EPILEPSY [None]
  - STATUS EPILEPTICUS [None]
